FAERS Safety Report 4565247-2 (Version None)
Quarter: 2005Q1

REPORT INFORMATION
  Report Type: 
  Country: None (occurrence: None)
  Receive Date: 20050131
  Receipt Date: 20040812
  Transmission Date: 20050727
  Serious: Yes (Other)
  Sender: FDA-Public Use
  Company Number: US-ROCHE-377709

PATIENT
  Age: 28 Year
  Sex: Male

DRUGS (1)
  1. ACCUTANE [Suspect]
     Indication: ACUTE MYELOID LEUKAEMIA
     Dosage: DOSAGE REGIMEN REPORTED AS: 90 MG FOR 15 DAYS EVERY 3 MONTHS.
     Route: 048

REACTIONS (3)
  - ABORTION SPONTANEOUS [None]
  - DRUG EXPOSURE DURING PREGNANCY [None]
  - TRANSMISSION OF DRUG VIA SEMEN [None]
